FAERS Safety Report 23754298 (Version 2)
Quarter: 2024Q2

REPORT INFORMATION
  Report Type: Spontaneous
  Country: US (occurrence: US)
  Receive Date: 20240418
  Receipt Date: 20240429
  Transmission Date: 20240715
  Serious: Yes (Other)
  Sender: FDA-Public Use
  Company Number: US-BRISTOL-MYERS SQUIBB COMPANY-2024-060538

PATIENT

DRUGS (4)
  1. NIVOLUMAB [Suspect]
     Active Substance: NIVOLUMAB
     Indication: Bone sarcoma
     Dosage: DOSE : 3 MG/KG;     FREQ : EVERY 2 WEEKS
     Route: 042
  2. NIVOLUMAB [Suspect]
     Active Substance: NIVOLUMAB
     Indication: Soft tissue sarcoma
     Route: 042
  3. PAZOPANIB [Suspect]
     Active Substance: PAZOPANIB
     Indication: Bone sarcoma
     Dosage: 400-800 MG PO DAILY;
     Route: 048
  4. PAZOPANIB [Suspect]
     Active Substance: PAZOPANIB
     Indication: Soft tissue sarcoma
     Dosage: 400-800 MG PO DAILY;
     Route: 048

REACTIONS (1)
  - Colitis [Recovering/Resolving]
